FAERS Safety Report 18153716 (Version 1)
Quarter: 2020Q3

REPORT INFORMATION
  Report Type: Spontaneous
  Country: GB (occurrence: GB)
  Receive Date: 20200816
  Receipt Date: 20200816
  Transmission Date: 20201103
  Serious: Yes (Other)
  Sender: FDA-Public Use
  Company Number: NVSC2020GB222708

PATIENT
  Sex: Female

DRUGS (1)
  1. ESTRADERM [Suspect]
     Active Substance: ESTRADIOL
     Indication: HORMONE REPLACEMENT THERAPY
     Dosage: 50 UG, QD (50 UG/ 24HOURS (QD) TRANSDERMAL PATCH)
     Route: 062

REACTIONS (3)
  - Product adhesion issue [Unknown]
  - Stress [Unknown]
  - Wrong technique in product usage process [Unknown]
